FAERS Safety Report 10612987 (Version 3)
Quarter: 2015Q2

REPORT INFORMATION
  Report Type: Report from Study
  Country: NL (occurrence: NL)
  Receive Date: 20141127
  Receipt Date: 20150505
  Transmission Date: 20150821
  Serious: Yes (Hospitalization, Other)
  Sender: FDA-Public Use
  Company Number: PHHY2014NL038438

PATIENT
  Age: 74 Year
  Sex: Female

DRUGS (6)
  1. LDK378 [Suspect]
     Active Substance: CERITINIB
     Indication: PRODUCT USED FOR UNKNOWN INDICATION
     Dosage: 750 MG, UNK
     Route: 065
     Dates: start: 20140120
  2. LDK378 [Suspect]
     Active Substance: CERITINIB
     Dosage: 450 MG, UNK
     Route: 065
     Dates: start: 20140224
  3. LDK378 [Suspect]
     Active Substance: CERITINIB
     Dosage: 750 MG, UNK
     Route: 065
     Dates: start: 20140301
  4. LDK378 [Suspect]
     Active Substance: CERITINIB
     Dosage: 300 MG, UNK
     Route: 065
     Dates: start: 20140429, end: 20140506
  5. LDK378 [Suspect]
     Active Substance: CERITINIB
     Dosage: 600 MG, UNK
     Route: 065
     Dates: start: 20140207
  6. LDK378 [Suspect]
     Active Substance: CERITINIB
     Dosage: 450 MG, UNK
     Route: 065
     Dates: start: 20140523, end: 20141030

REACTIONS (26)
  - Aspartate aminotransferase increased [Recovered/Resolved]
  - Vomiting [Recovered/Resolved]
  - Oedema peripheral [Recovered/Resolved]
  - Dyspnoea [Not Recovered/Not Resolved]
  - Malaise [Unknown]
  - Disease progression [Unknown]
  - Diarrhoea [Recovered/Resolved]
  - Blood creatinine increased [Recovered/Resolved with Sequelae]
  - Weight decreased [Recovering/Resolving]
  - Diarrhoea [Recovered/Resolved]
  - Dyspnoea [Recovered/Resolved with Sequelae]
  - Dehydration [Recovered/Resolved]
  - Abdominal pain [Recovering/Resolving]
  - Blood alkaline phosphatase increased [Recovering/Resolving]
  - Diarrhoea [Not Recovered/Not Resolved]
  - Nausea [Recovered/Resolved]
  - Nausea [Recovered/Resolved]
  - Cough [Recovering/Resolving]
  - Fatigue [Not Recovered/Not Resolved]
  - Atrial fibrillation [Recovered/Resolved]
  - Blood creatinine increased [Not Recovered/Not Resolved]
  - Nasopharyngitis [Recovered/Resolved]
  - Decreased appetite [Recovered/Resolved]
  - Vomiting [Recovered/Resolved]
  - Chest pain [Not Recovered/Not Resolved]
  - Pulmonary embolism [Unknown]

NARRATIVE: CASE EVENT DATE: 20140120
